FAERS Safety Report 7994037-3 (Version None)
Quarter: 2011Q4

REPORT INFORMATION
  Report Type: 
  Country: None (occurrence: None)
  Receive Date: 20111215
  Receipt Date: 20111130
  Transmission Date: 20120403
  Serious: Yes (Death)
  Sender: FDA-Public Use
  Company Number: 2011CP000191

PATIENT
  Age: 34 Year
  Sex: Female

DRUGS (8)
  1. CIPROFLOXACIN HCL [Suspect]
  2. LEVOMEPROMAZINE (LEVOMEPROMAZINE) [Suspect]
  3. CLONIDINE [Concomitant]
  4. VANCOMYCIN [Suspect]
  5. FUROSEMIDE [Suspect]
     Dates: start: 20111004, end: 20111004
  6. ACETAMINOPHEN [Suspect]
     Dosage: ;IV
     Route: 042
     Dates: start: 20111003, end: 20111007
  7. PRIMAXIN [Suspect]
     Dates: start: 20110927, end: 20111008
  8. CALCIPARINE [Suspect]
     Dosage: .2 ML;2/1 DAY;SC
     Route: 058
     Dates: start: 20110922, end: 20111006

REACTIONS (5)
  - THROMBOCYTOPENIA [None]
  - BRAIN HERNIATION [None]
  - CEREBRAL HAEMATOMA [None]
  - BRAIN DEATH [None]
  - COMA [None]
